FAERS Safety Report 20034885 (Version 3)
Quarter: 2022Q1

REPORT INFORMATION
  Report Type: Report from Study
  Country: US (occurrence: US)
  Receive Date: 20211104
  Receipt Date: 20220224
  Transmission Date: 20220423
  Serious: Yes (Hospitalization, Other)
  Sender: FDA-Public Use
  Company Number: US-EXELIXIS-XL18421045617

PATIENT
  Age: 61 Year
  Sex: Male
  Weight: 67.392 kg

DRUGS (13)
  1. CABOZANTINIB [Suspect]
     Active Substance: CABOZANTINIB
     Indication: Thyroid cancer
     Dosage: 40 MG, QD
     Route: 048
     Dates: start: 20200729
  2. CABOZANTINIB [Suspect]
     Active Substance: CABOZANTINIB
     Dosage: 20 MG, QD
     Route: 048
     Dates: end: 20210902
  3. CABOZANTINIB [Suspect]
     Active Substance: CABOZANTINIB
     Dosage: 20 MG, QD
     Route: 048
     Dates: start: 20210915
  4. ATEZOLIZUMAB [Suspect]
     Active Substance: ATEZOLIZUMAB
     Indication: Thyroid cancer
     Dosage: 1200 MG, Q3WEEKS
     Route: 042
     Dates: start: 20200729, end: 20210811
  5. ALBUTEROL [Concomitant]
     Active Substance: ALBUTEROL
  6. KEPPRA [Concomitant]
     Active Substance: LEVETIRACETAM
  7. LEVOTHYROXINE [Concomitant]
     Active Substance: LEVOTHYROXINE
  8. BACLOFEN [Concomitant]
     Active Substance: BACLOFEN
  9. TAMSULOSIN [Concomitant]
     Active Substance: TAMSULOSIN
  10. VITAMIN D3 [Concomitant]
     Active Substance: CHOLECALCIFEROL
  11. PREDNISONE [Concomitant]
     Active Substance: PREDNISONE
     Indication: Immune-mediated hepatitis
  12. CALCIUM CARBONATE [Concomitant]
     Active Substance: CALCIUM CARBONATE
  13. Covid-19 vaccine [Concomitant]

REACTIONS (2)
  - Immune-mediated hepatitis [Recovered/Resolved]
  - Mental status changes [Recovered/Resolved]

NARRATIVE: CASE EVENT DATE: 20210902
